FAERS Safety Report 10073395 (Version 2)
Quarter: 2014Q2

REPORT INFORMATION
  Report Type: Spontaneous
  Country: US (occurrence: US)
  Receive Date: 20140411
  Receipt Date: 20140411
  Transmission Date: 20141212
  Serious: Yes (Life-Threatening, Hospitalization, Other)
  Sender: FDA-Public Use
  Company Number: US-SHIRE-ALL1-2012-04868

PATIENT
  Age: 23 Month
  Sex: Male

DRUGS (1)
  1. METHYLPHENIDATE HYDROCHLORIDE [Suspect]
     Indication: ACCIDENTAL EXPOSURE TO PRODUCT
     Dosage: 10 MG, UNKNOWN (UNKNOWN TOTAL TABLETS INGESTED)
     Route: 065

REACTIONS (3)
  - Accidental exposure to product by child [Recovered/Resolved]
  - Torticollis [Recovered/Resolved]
  - Dyskinesia [Recovered/Resolved]
